FAERS Safety Report 17196550 (Version 3)
Quarter: 2021Q1

REPORT INFORMATION
  Report Type: Spontaneous
  Country: US (occurrence: US)
  Receive Date: 20191224
  Receipt Date: 20210211
  Transmission Date: 20210419
  Serious: No
  Sender: FDA-Public Use
  Company Number: US-VERTEX PHARMACEUTICALS-2019-013034

PATIENT
  Age: 46 Year
  Sex: Male

DRUGS (22)
  1. TOBI [Concomitant]
     Active Substance: TOBRAMYCIN
  2. DUONEB [Concomitant]
     Active Substance: ALBUTEROL SULFATE\IPRATROPIUM BROMIDE
  3. VITAMIN D [ERGOCALCIFEROL] [Concomitant]
     Active Substance: ERGOCALCIFEROL
  4. AZITHROMYCIN ANHYDROUS. [Concomitant]
     Active Substance: AZITHROMYCIN ANHYDROUS
  5. PROAIR HFA [Concomitant]
     Active Substance: ALBUTEROL SULFATE
  6. PULMOZYME [Concomitant]
     Active Substance: DORNASE ALFA
  7. SODIUM CHLORIDE. [Concomitant]
     Active Substance: SODIUM CHLORIDE
  8. BASAGLAR [Concomitant]
     Active Substance: INSULIN GLARGINE
  9. CALTRATE WITH VITAMIN D [Concomitant]
     Active Substance: CALCIUM CARBONATE\CHOLECALCIFEROL
  10. AMOXICILLIN. [Suspect]
     Active Substance: AMOXICILLIN
     Indication: PRODUCT USED FOR UNKNOWN INDICATION
     Route: 065
  11. VITAMIN D3 [Concomitant]
     Active Substance: CHOLECALCIFEROL
  12. SYMBICORT [Concomitant]
     Active Substance: BUDESONIDE\FORMOTEROL FUMARATE DIHYDRATE
  13. VITAMIN C [Concomitant]
     Active Substance: ASCORBIC ACID
  14. URSODIOL. [Concomitant]
     Active Substance: URSODIOL
  15. AMLODIPINE [Concomitant]
     Active Substance: AMLODIPINE BESYLATE
  16. LEXAPRO [Concomitant]
     Active Substance: ESCITALOPRAM OXALATE
  17. TRIKAFTA [Suspect]
     Active Substance: ELEXACAFTOR\IVACAFTOR\TEZACAFTOR
     Indication: CYSTIC FIBROSIS
     Dosage: 2 TABLETS (100 MG ELEXACAFTOR/ 50 MG TEZACAFTOR/ 75 MG IVACAFTOR) AM; 1 TABLET (150MG IVACAFTOR) PM
     Route: 048
     Dates: start: 20191130
  18. MINOCYCLINE [Concomitant]
     Active Substance: MINOCYCLINE HYDROCHLORIDE
  19. CREON [Concomitant]
     Active Substance: PANCRELIPASE AMYLASE\PANCRELIPASE LIPASE\PANCRELIPASE PROTEASE
  20. NEXIUM I.V. [Concomitant]
     Active Substance: ESOMEPRAZOLE SODIUM
  21. MEROPENEM. [Concomitant]
     Active Substance: MEROPENEM
  22. COMBIVENT [Concomitant]
     Active Substance: ALBUTEROL SULFATE\IPRATROPIUM BROMIDE

REACTIONS (3)
  - Back pain [Recovered/Resolved]
  - Rash erythematous [Recovering/Resolving]
  - Weight increased [Unknown]

NARRATIVE: CASE EVENT DATE: 2019
